FAERS Safety Report 8486257-9 (Version None)
Quarter: 2012Q3

REPORT INFORMATION
  Report Type: 
  Country: None (occurrence: None)
  Receive Date: 20120703
  Receipt Date: 20120628
  Transmission Date: 20120928
  Serious: Yes (Other)
  Sender: FDA-Public Use
  Company Number: US-PFIZER INC-2012119917

PATIENT
  Sex: Female

DRUGS (7)
  1. LYRICA [Suspect]
     Dosage: 150 MG, 2X/DAY
     Route: 048
  2. LYRICA [Suspect]
     Dosage: 150 MG, 2X/DAY
     Route: 048
  3. LYRICA [Suspect]
     Dosage: 100 MG, 3X/DAY
     Route: 048
  4. LYRICA [Suspect]
     Indication: FIBROMYALGIA
     Dosage: 150 MG, 1X/DAY
     Route: 048
     Dates: start: 20120301, end: 20120301
  5. LYRICA [Suspect]
     Dosage: 100 MG, 1X/DAY (BED TIME)
     Route: 048
  6. LYRICA [Suspect]
     Dosage: 300 MG, 1X/DAY
     Route: 048
     Dates: start: 20120301, end: 20120514
  7. LYRICA [Suspect]
     Dosage: 100 MG, UNK

REACTIONS (7)
  - MOVEMENT DISORDER [None]
  - CONFUSIONAL STATE [None]
  - IMPAIRED DRIVING ABILITY [None]
  - PAIN [None]
  - DISTURBANCE IN ATTENTION [None]
  - SEDATION [None]
  - FEELING ABNORMAL [None]
